FAERS Safety Report 4613593-6 (Version None)
Quarter: 2005Q1

REPORT INFORMATION
  Report Type: 
  Country: None (occurrence: None)
  Receive Date: 20050321
  Receipt Date: 20050308
  Transmission Date: 20050727
  Serious: Yes (Death)
  Sender: FDA-Public Use
  Company Number: US-JNJFOC-20050302857

PATIENT
  Age: 2 Year

DRUGS (1)
  1. TOPAMAX [Suspect]
     Route: 065

REACTIONS (1)
  - CONVULSION [None]
